FAERS Safety Report 21376225 (Version 2)
Quarter: 2022Q3

REPORT INFORMATION
  Report Type: Spontaneous
  Country: FR (occurrence: FR)
  Receive Date: 20220926
  Receipt Date: 20220930
  Transmission Date: 20221027
  Serious: No
  Sender: FDA-Public Use
  Company Number: FR-SANOFI-01281807

PATIENT
  Age: 72 Year
  Sex: Male

DRUGS (2)
  1. RIFAMPIN [Suspect]
     Active Substance: RIFAMPIN
     Indication: Infection
     Dosage: 600 MG, TID
  2. MEROPENEM [Concomitant]
     Active Substance: MEROPENEM
     Indication: Spinal cord abscess
     Dosage: 8 G, QD

REACTIONS (1)
  - Product prescribing error [Unknown]
